FAERS Safety Report 4286079-9 (Version None)
Quarter: 2004Q1

REPORT INFORMATION
  Report Type: 
  Country: None (occurrence: None)
  Receive Date: 20040202
  Receipt Date: 20040202
  Transmission Date: 20041129
  Serious: Yes (Hospitalization)
  Sender: FDA-Public Use
  Company Number: None

PATIENT
  Age: 72 Year

DRUGS (4)
  1. IBUPROFEN [Suspect]
     Indication: PAIN
  2. ALCOHOL [Concomitant]
  3. GLIMEPIRIDE [Concomitant]
  4. AMLODIPINE [Concomitant]

REACTIONS (4)
  - ALCOHOL USE [None]
  - DIARRHOEA HAEMORRHAGIC [None]
  - HAEMOGLOBIN DECREASED [None]
  - VARICES OESOPHAGEAL [None]
